FAERS Safety Report 4761851-7 (Version None)
Quarter: 2005Q3

REPORT INFORMATION
  Report Type: 
  Country: None (occurrence: None)
  Receive Date: 20050906
  Receipt Date: 20050406
  Transmission Date: 20060218
  Serious: Yes (Hospitalization, Disabling)
  Sender: FDA-Public Use
  Company Number: US-ROCHE-401137

PATIENT
  Age: 15 Year
  Sex: Male
  Weight: 76.7 kg

DRUGS (1)
  1. ACCUTANE [Suspect]
     Route: 048
     Dates: start: 19910401, end: 19910731

REACTIONS (83)
  - ABDOMINAL PAIN UPPER [None]
  - ABSCESS INTESTINAL [None]
  - ACUTE SINUSITIS [None]
  - ANOREXIA [None]
  - APPENDIX DISORDER [None]
  - ARTHRALGIA [None]
  - ASTHENIA [None]
  - BACK PAIN [None]
  - BOWEL SOUNDS ABNORMAL [None]
  - CHAPPED LIPS [None]
  - CHRONIC FATIGUE SYNDROME [None]
  - COLITIS [None]
  - COLONIC FISTULA [None]
  - COLONIC STENOSIS [None]
  - COUGH [None]
  - CROHN'S DISEASE [None]
  - DANDRUFF [None]
  - DECREASED APPETITE [None]
  - DEFAECATION URGENCY [None]
  - DEPRESSION [None]
  - DERMAL CYST [None]
  - DERMATITIS CONTACT [None]
  - DIARRHOEA [None]
  - DIZZINESS [None]
  - DUODENITIS [None]
  - DYSURIA [None]
  - EARLY SATIETY [None]
  - ERYTHEMA [None]
  - EXFOLIATIVE RASH [None]
  - FAECES DISCOLOURED [None]
  - FLATULENCE [None]
  - FOLLICULITIS [None]
  - GASTROENTERITIS [None]
  - GASTROINTESTINAL DISORDER [None]
  - GASTROOESOPHAGEAL REFLUX DISEASE [None]
  - HAEMATOCHEZIA [None]
  - HEPATITIS [None]
  - IMPETIGO [None]
  - INFLAMMATORY BOWEL DISEASE [None]
  - INFLUENZA LIKE ILLNESS [None]
  - INSOMNIA [None]
  - INTESTINAL FISTULA [None]
  - INTESTINAL HAEMORRHAGE [None]
  - INTESTINAL OBSTRUCTION [None]
  - INTESTINAL ULCER [None]
  - LETHARGY [None]
  - LICHEN SCLEROSUS [None]
  - LIGAMENT CALCIFICATION [None]
  - MALAISE [None]
  - MULTI-ORGAN DISORDER [None]
  - MYALGIA [None]
  - NAUSEA [None]
  - NIGHT SWEATS [None]
  - OESOPHAGEAL PAIN [None]
  - OESOPHAGITIS [None]
  - ORTHOSTATIC HYPOTENSION [None]
  - OTITIS MEDIA [None]
  - PAIN [None]
  - PELVIC ABSCESS [None]
  - PHARYNGEAL LESION [None]
  - PHARYNGITIS [None]
  - PHARYNGOLARYNGEAL PAIN [None]
  - PROCTALGIA [None]
  - PRURITUS [None]
  - PURULENCE [None]
  - PYREXIA [None]
  - RASH [None]
  - RECTAL HAEMORRHAGE [None]
  - ROSAI-DORFMAN SYNDROME [None]
  - SKIN LESION [None]
  - SMALL INTESTINE ULCER [None]
  - SOMNOLENCE [None]
  - SUICIDAL IDEATION [None]
  - SYNCOPE [None]
  - TENDON CALCIFICATION [None]
  - TENSION HEADACHE [None]
  - TINEA CRURIS [None]
  - UPPER RESPIRATORY TRACT INFECTION [None]
  - VIRAEMIA [None]
  - VIRAL INFECTION [None]
  - VOMITING [None]
  - WEIGHT DECREASED [None]
  - WHITE BLOOD CELL COUNT INCREASED [None]
